FAERS Safety Report 9184333 (Version 1)
Quarter: 2013Q1

REPORT INFORMATION
  Report Type: Spontaneous
  Country: US (occurrence: US)
  Receive Date: 20130322
  Receipt Date: 20130322
  Transmission Date: 20140127
  Serious: Yes (Other)
  Sender: FDA-Public Use
  Company Number: US-GLAXOSMITHKLINE-A0964226A

PATIENT
  Age: 44 Year
  Sex: Female
  Weight: 108.3 kg

DRUGS (20)
  1. BENLYSTA [Suspect]
     Indication: SYSTEMIC LUPUS ERYTHEMATOSUS
     Dosage: 10MGK EVERY 28 DAYS
     Route: 042
     Dates: start: 201007, end: 20130313
  2. ADDERALL [Concomitant]
     Dosage: 20MG PER DAY
     Route: 048
  3. PLAQUENIL [Concomitant]
     Dosage: 200MG PER DAY
     Route: 048
     Dates: start: 201106, end: 201206
  4. ASPIRIN [Concomitant]
     Dosage: 81MG PER DAY
     Route: 048
  5. FOLIC ACID [Concomitant]
     Dosage: 1MG PER DAY
     Route: 048
  6. VITAMIN D [Concomitant]
     Dosage: 2000IU PER DAY
     Route: 048
  7. FISH OIL [Concomitant]
  8. NIACIN [Concomitant]
     Dosage: 500MG PER DAY
     Route: 048
  9. CITALOPRAM [Concomitant]
     Dosage: 10MG PER DAY
  10. AMLODIPINE BESYLATE [Concomitant]
     Dosage: 5MG PER DAY
     Route: 048
  11. MILK THISTLE [Concomitant]
  12. HYDROCHLOROTHIAZIDE [Concomitant]
     Dosage: 200MG PER DAY
     Route: 048
  13. CLINDAMYCIN [Concomitant]
  14. VITAMIN C [Concomitant]
  15. PREDNISONE [Concomitant]
     Dosage: 5MG PER DAY
     Route: 048
  16. AZATHIOPRINE [Concomitant]
     Dosage: 20MG PER DAY
  17. CELEXA [Concomitant]
     Dosage: 10MG PER DAY
     Route: 048
  18. PRILOSEC [Concomitant]
     Dosage: 20MG PER DAY
     Route: 048
  19. DEXAMFETAMINE [Concomitant]
  20. IMURAN [Concomitant]
     Dates: start: 201106, end: 201206

REACTIONS (7)
  - Pharyngitis streptococcal [Not Recovered/Not Resolved]
  - Dysgeusia [Recovered/Resolved]
  - Onycholysis [Not Recovered/Not Resolved]
  - Onychomycosis [Not Recovered/Not Resolved]
  - Pain in extremity [Unknown]
  - Breast hyperplasia [Unknown]
  - Breast neoplasm [Unknown]
